FAERS Safety Report 5170609-9 (Version None)
Quarter: 2006Q4

REPORT INFORMATION
  Report Type: 
  Country: None (occurrence: None)
  Receive Date: 20061205
  Receipt Date: 20061123
  Transmission Date: 20070319
  Serious: Yes (Other)
  Sender: FDA-Public Use
  Company Number: 2006145195

PATIENT
  Age: 66 Year
  Sex: Female

DRUGS (2)
  1. LIPITOR [Suspect]
     Dosage: ORAL
     Route: 048
  2. ATACAND [Concomitant]

REACTIONS (4)
  - AMNESIA [None]
  - FEELING ABNORMAL [None]
  - PAIN IN EXTREMITY [None]
  - RASH ERYTHEMATOUS [None]
